FAERS Safety Report 9773679 (Version 1)
Quarter: 2013Q4

REPORT INFORMATION
  Report Type: Spontaneous
  Country: US (occurrence: US)
  Receive Date: 20131219
  Receipt Date: 20131219
  Transmission Date: 20140711
  Serious: No
  Sender: FDA-Public Use
  Company Number: US-MYLANLABS-2013S1024193

PATIENT
  Age: 69 Year
  Sex: Female

DRUGS (3)
  1. ATORVASTATIN CALCIUM TABLETS [Suspect]
     Route: 048
     Dates: start: 201306
  2. AMBIEN [Concomitant]
  3. FLONASE [Concomitant]

REACTIONS (1)
  - Nervousness [Not Recovered/Not Resolved]
